FAERS Safety Report 6338163-3 (Version None)
Quarter: 2009Q3

REPORT INFORMATION
  Report Type: 
  Country: None (occurrence: None)
  Receive Date: 20090902
  Receipt Date: 20090821
  Transmission Date: 20100115
  Serious: Yes (Death, Hospitalization)
  Sender: FDA-Public Use
  Company Number: US-PFIZER INC-2009223680

PATIENT
  Sex: Male
  Weight: 82.1 kg

DRUGS (2)
  1. SUNITINIB MALATE [Suspect]
     Indication: RENAL CELL CARCINOMA
     Dosage: 50 MG, 1X/DAY, 4/2 CYCLE
     Dates: start: 20080801
  2. SUNITINIB MALATE [Suspect]
     Dosage: 37.5 MG, 1X/DAY, 4/2 CYCLE
     Dates: end: 20090811

REACTIONS (3)
  - DEATH [None]
  - DEHYDRATION [None]
  - FLUID RETENTION [None]
